FAERS Safety Report 25661949 (Version 1)
Quarter: 2025Q3

REPORT INFORMATION
  Report Type: Spontaneous
  Country: CA (occurrence: CA)
  Receive Date: 20250809
  Receipt Date: 20250809
  Transmission Date: 20251021
  Serious: Yes (Other)
  Sender: CELLTRION
  Company Number: CA-PFIZER INC-202500126665

PATIENT

DRUGS (10)
  1. INFLECTRA [Suspect]
     Active Substance: INFLIXIMAB-DYYB
     Indication: Crohn^s disease
     Dates: start: 20211203, end: 20220318
  2. INFLECTRA [Suspect]
     Active Substance: INFLIXIMAB-DYYB
     Dates: start: 20220513, end: 20220708
  3. INFLECTRA [Suspect]
     Active Substance: INFLIXIMAB-DYYB
     Dates: start: 20220902
  4. INFLECTRA [Suspect]
     Active Substance: INFLIXIMAB-DYYB
     Dates: start: 20250509
  5. INFLECTRA [Suspect]
     Active Substance: INFLIXIMAB-DYYB
     Dates: start: 20250620
  6. INFLECTRA [Suspect]
     Active Substance: INFLIXIMAB-DYYB
     Dates: start: 20250801
  7. CAL D [CALCIUM CARBONATE;COLECALCIFEROL] [Concomitant]
  8. MESALAMINE [Concomitant]
     Active Substance: MESALAMINE
  9. TYLENOL [Concomitant]
     Active Substance: ACETAMINOPHEN
  10. PREDNISONE [Concomitant]
     Active Substance: PREDNISONE

REACTIONS (5)
  - Psoriatic arthropathy [Recovered/Resolved]
  - Ligament sprain [Not Recovered/Not Resolved]
  - Arthralgia [Recovered/Resolved]
  - Cerumen impaction [Not Recovered/Not Resolved]
  - Hypoacusis [Not Recovered/Not Resolved]

NARRATIVE: CASE EVENT DATE: 20250101
